FAERS Safety Report 6287692-X (Version None)
Quarter: 2009Q3

REPORT INFORMATION
  Report Type: 
  Country: None (occurrence: None)
  Receive Date: 20090727
  Receipt Date: 20090727
  Transmission Date: 20100115
  Serious: No
  Sender: FDA-Public Use
  Company Number: None

PATIENT
  Age: 23 Year
  Sex: Male
  Weight: 65.7716 kg

DRUGS (1)
  1. ACCUTANE [Suspect]
     Indication: ACNE
     Dosage: 40 - 80 MG, ONCE DAILY, PO
     Route: 048
     Dates: start: 19940206, end: 19940328

REACTIONS (6)
  - CHAPPED LIPS [None]
  - ERECTILE DYSFUNCTION [None]
  - LIP DRY [None]
  - NERVE INJURY [None]
  - POST PROCEDURAL URINE LEAK [None]
  - URINARY INCONTINENCE [None]
